FAERS Safety Report 6893041-6 (Version None)
Quarter: 2010Q3

REPORT INFORMATION
  Report Type: 
  Country: None (occurrence: None)
  Receive Date: 20100731
  Receipt Date: 20090309
  Transmission Date: 20110219
  Serious: No
  Sender: FDA-Public Use
  Company Number: US-PFIZER INC-2008096601

PATIENT
  Sex: Male
  Weight: 81.8 kg

DRUGS (4)
  1. CAVERJECT [Suspect]
     Indication: SEXUAL DYSFUNCTION
     Dosage: 40 MG, 1X/DAY
     Dates: start: 19980101
  2. LOVASTATIN [Concomitant]
  3. CRESTOR [Concomitant]
     Indication: BLOOD CHOLESTEROL INCREASED
     Dosage: 5 MG, UNK
  4. FELODIPINE [Concomitant]
     Indication: HYPERTENSION

REACTIONS (2)
  - DRUG INEFFECTIVE [None]
  - ERECTILE DYSFUNCTION [None]
